FAERS Safety Report 9455517 (Version 2)
Quarter: 2013Q3

REPORT INFORMATION
  Report Type: Spontaneous
  Country: FR (occurrence: FR)
  Receive Date: 20130813
  Receipt Date: 20130826
  Transmission Date: 20140515
  Serious: Yes (Hospitalization, Other)
  Sender: FDA-Public Use
  Company Number: FR-ASTRAZENECA-2013SE61477

PATIENT
  Age: 26594 Day
  Sex: Male

DRUGS (8)
  1. HYTACAND [Suspect]
     Indication: CARDIOMYOPATHY
     Dosage: LONG LASTING TREATMENT, 1 DF DAILY, 16 MG CANDESARTAN + 12.5 MG HYDROCHLOROTHIAZIDE
     Route: 048
     Dates: end: 20130514
  2. OMEXEL [Interacting]
     Route: 048
     Dates: start: 201301, end: 20130513
  3. BURINEX [Interacting]
     Indication: CARDIOMYOPATHY
     Route: 048
     Dates: end: 20130514
  4. TEMERIT [Interacting]
     Indication: CARDIOMYOPATHY
     Route: 048
     Dates: end: 20130513
  5. CORDARONE [Interacting]
     Indication: ATRIAL FIBRILLATION
     Route: 048
     Dates: end: 20130513
  6. LEVOTHYROX [Concomitant]
     Indication: HYPOTHYROIDISM
     Dosage: LONG LASTING TREATMENT
     Route: 048
  7. PREVISCAN [Concomitant]
     Indication: ATRIAL FIBRILLATION
     Dosage: LONG LASTING TREATMENT - 10 MG ONE DAY, 15 MG EVERY OTHER DAY
     Route: 048
  8. MOPRAL [Concomitant]
     Route: 048

REACTIONS (8)
  - Drug interaction [Unknown]
  - Syncope [Recovered/Resolved]
  - Monoparesis [Recovered/Resolved]
  - Bradycardia [Recovered/Resolved]
  - Dysaesthesia [Recovered/Resolved]
  - Orthostatic hypotension [Unknown]
  - Ejection fraction decreased [Unknown]
  - Off label use [Recovered/Resolved]
